FAERS Safety Report 9450209 (Version 2)
Quarter: 2013Q3

REPORT INFORMATION
  Report Type: Report from Study
  Country: FR (occurrence: FR)
  Receive Date: 20130809
  Receipt Date: 20130821
  Transmission Date: 20140515
  Serious: Yes (Hospitalization)
  Sender: FDA-Public Use
  Company Number: FR-ABBOTT-13P-056-1127257-00

PATIENT
  Age: 37 Year
  Sex: Male
  Weight: 122 kg

DRUGS (4)
  1. HUMIRA [Suspect]
     Indication: HIDRADENITIS
     Route: 058
     Dates: start: 20130527, end: 20130708
  2. HUMIRA [Suspect]
     Route: 058
     Dates: start: 20130801
  3. CYTEAL [Concomitant]
     Indication: HIDRADENITIS
     Route: 061
     Dates: start: 20121210
  4. PARACETAMOL [Concomitant]
     Indication: HIDRADENITIS
     Route: 048
     Dates: start: 20121224

REACTIONS (1)
  - Pneumonia viral [Not Recovered/Not Resolved]
